FAERS Safety Report 11518478 (Version 1)
Quarter: 2015Q3

REPORT INFORMATION
  Report Type: Spontaneous
  Country: US (occurrence: None)
  Receive Date: 20150917
  Receipt Date: 20150917
  Transmission Date: 20151125
  Serious: Yes (Other)
  Sender: FDA-Public Use
  Company Number: ADR-2015-01214

PATIENT
  Age: 64 Year
  Sex: Female

DRUGS (2)
  1. HYDROMORPHONE INTRATHECAL 10MG/ML [Suspect]
     Active Substance: HYDROMORPHONE
     Dosage: 9/DAY
  2. COMPOUNDED BACLOFEN INTRATHECAL 100MCG/ML [Suspect]
     Active Substance: BACLOFEN
     Indication: PAIN
     Dosage: 90/DAY

REACTIONS (1)
  - Drug withdrawal syndrome [None]
